FAERS Safety Report 11895262 (Version 1)
Quarter: 2016Q1

REPORT INFORMATION
  Report Type: Spontaneous
  Country: US (occurrence: US)
  Receive Date: 20160107
  Receipt Date: 20160107
  Transmission Date: 20160526
  Serious: No
  Sender: FDA-Public Use
  Company Number: US-BAYER-2016-001449

PATIENT
  Age: 46 Year
  Sex: Male
  Weight: 68.27 kg

DRUGS (3)
  1. ZANTAC [Concomitant]
     Active Substance: RANITIDINE HYDROCHLORIDE
     Dosage: UNK
  2. ONE A DAY VITACRAVES GUMMIES [Concomitant]
     Indication: VITAMIN SUPPLEMENTATION
     Dosage: UNK, QD
     Route: 048
  3. ZEGERID OTC CAPSULES [Suspect]
     Active Substance: OMEPRAZOLE\SODIUM BICARBONATE
     Indication: DYSPEPSIA
     Dosage: 1 DF, QD
     Route: 048
     Dates: start: 20151228, end: 20160103

REACTIONS (3)
  - Dizziness [Not Recovered/Not Resolved]
  - Increased appetite [Not Recovered/Not Resolved]
  - Oropharyngeal discomfort [Not Recovered/Not Resolved]

NARRATIVE: CASE EVENT DATE: 20151228
